FAERS Safety Report 18503788 (Version 3)
Quarter: 2020Q4

REPORT INFORMATION
  Report Type: Spontaneous
  Country: US (occurrence: US)
  Receive Date: 20201113
  Receipt Date: 20201218
  Transmission Date: 20210114
  Serious: Yes (Hospitalization, Other)
  Sender: FDA-Public Use
  Company Number: US-ASTRAZENECA-2020SF46523

PATIENT
  Age: 69 Year
  Sex: Female
  Weight: 88.5 kg

DRUGS (8)
  1. ROSUVASTATIN. [Suspect]
     Active Substance: ROSUVASTATIN
     Route: 048
  2. CLOPIDOGREL [Concomitant]
     Active Substance: CLOPIDOGREL BISULFATE
  3. DULOXETINE. [Concomitant]
     Active Substance: DULOXETINE
  4. ASPIRIN. [Concomitant]
     Active Substance: ASPIRIN
  5. FARXIGA [Suspect]
     Active Substance: DAPAGLIFLOZIN PROPANEDIOL
     Indication: TYPE 2 DIABETES MELLITUS
     Route: 048
     Dates: start: 20190123, end: 20201023
  6. LANTUS [Concomitant]
     Active Substance: INSULIN GLARGINE
  7. TRULICITY [Concomitant]
     Active Substance: DULAGLUTIDE
     Indication: TYPE 2 DIABETES MELLITUS
     Dosage: 1.5MG UNKNOWN
  8. GLIPIZIDE. [Concomitant]
     Active Substance: GLIPIZIDE
     Dosage: 10.0MG UNKNOWN

REACTIONS (7)
  - Ligament sprain [Unknown]
  - Cervical radiculopathy [Unknown]
  - Urinary tract infection fungal [Unknown]
  - Diabetic ketoacidosis [Recovered/Resolved]
  - Cerebrovascular accident [Unknown]
  - Dehydration [Unknown]
  - Vulvovaginal candidiasis [Unknown]
